FAERS Safety Report 13386248 (Version 1)
Quarter: 2017Q1

REPORT INFORMATION
  Report Type: Report from Study
  Country: US (occurrence: US)
  Receive Date: 20170330
  Receipt Date: 20170330
  Transmission Date: 20170429
  Serious: Yes (Hospitalization)
  Sender: FDA-Public Use
  Company Number: US-LEO PHARMA-300445

PATIENT

DRUGS (2)
  1. TOPICAL CORTICOSTEROIDS [Concomitant]
     Active Substance: UNSPECIFIED INGREDIENT
     Indication: DERMATITIS ATOPIC
     Route: 061
  2. PROTOPIC [Suspect]
     Active Substance: TACROLIMUS
     Indication: DERMATITIS ATOPIC

REACTIONS (1)
  - Cardiac operation [Unknown]

NARRATIVE: CASE EVENT DATE: 20161228
